FAERS Safety Report 15057366 (Version 2)
Quarter: 2018Q3

REPORT INFORMATION
  Report Type: Spontaneous
  Country: JP (occurrence: JP)
  Receive Date: 20180625
  Receipt Date: 20180711
  Transmission Date: 20181010
  Serious: Yes (Other)
  Sender: FDA-Public Use
  Company Number: JP-ROCHE-2144029

PATIENT
  Age: 63 Year
  Sex: Female

DRUGS (3)
  1. LUCENTIS [Suspect]
     Active Substance: RANIBIZUMAB
     Dosage: ONCE A MONTH IN THE RIGHT EYE
     Route: 031
     Dates: start: 20180211
  2. LUCENTIS [Suspect]
     Active Substance: RANIBIZUMAB
     Indication: DIABETIC RETINAL OEDEMA
     Dosage: ONCE A MONTH IN THE LEFT EYE
     Route: 031
     Dates: start: 20170413
  3. LUCENTIS [Suspect]
     Active Substance: RANIBIZUMAB
     Dosage: ONCE A MONTH IN THE RIGHT EYE
     Route: 031
     Dates: start: 20170420, end: 20171221

REACTIONS (3)
  - Disease progression [Unknown]
  - Visual acuity reduced [Unknown]
  - Diabetic retinal oedema [Unknown]

NARRATIVE: CASE EVENT DATE: 20180111
